FAERS Safety Report 6424809-8 (Version None)
Quarter: 2009Q4

REPORT INFORMATION
  Report Type: 
  Country: None (occurrence: None)
  Receive Date: 20091103
  Receipt Date: 20091023
  Transmission Date: 20100525
  Serious: Yes (Hospitalization, Other)
  Sender: FDA-Public Use
  Company Number: PHHY2009MX42354

PATIENT
  Age: 79 Year
  Sex: Male

DRUGS (1)
  1. DIOVAN [Suspect]
     Indication: HYPERTENSION
     Dosage: 1 TABLET (320 MG) PER DAY
     Route: 065
     Dates: start: 20080801, end: 20090709

REACTIONS (3)
  - CARDIAC FAILURE [None]
  - DYSPNOEA [None]
  - SLEEP APNOEA SYNDROME [None]
